FAERS Safety Report 5639946-5 (Version None)
Quarter: 2008Q1

REPORT INFORMATION
  Report Type: 
  Country: None (occurrence: None)
  Receive Date: 20080227
  Receipt Date: 20080219
  Transmission Date: 20080703
  Serious: No
  Sender: FDA-Public Use
  Company Number: BE-BAXTER-2008BH001511

PATIENT

DRUGS (2)
  1. EXTRANEAL [Suspect]
     Indication: PERITONEAL DIALYSIS
     Dosage: DOSE UNIT:UNKNOWN
     Route: 033
  2. SINTROM [Suspect]
     Indication: ANTICOAGULANT THERAPY
     Dosage: DOSE UNIT:UNKNOWN
     Route: 048

REACTIONS (2)
  - OVERDOSE [None]
  - PERITONEAL HAEMORRHAGE [None]
